FAERS Safety Report 9427779 (Version 1)
Quarter: 2013Q3

REPORT INFORMATION
  Report Type: Spontaneous
  Country: US (occurrence: None)
  Receive Date: 20130729
  Receipt Date: 20130729
  Transmission Date: 20140515
  Serious: Yes (Life-Threatening, Hospitalization, Disabling)
  Sender: FDA-Public Use
  Company Number: None

PATIENT
  Age: 46 None
  Sex: Female

DRUGS (1)
  1. SPRINTEC [Suspect]
     Indication: POLYMENORRHOEA
     Route: 048
     Dates: start: 20081119, end: 20081203

REACTIONS (4)
  - Pain in extremity [None]
  - Local swelling [None]
  - Muscle spasms [None]
  - Thrombosis [None]
